FAERS Safety Report 9391010 (Version 2)
Quarter: 2013Q3

REPORT INFORMATION
  Report Type: Spontaneous
  Country: TW (occurrence: TW)
  Receive Date: 20130709
  Receipt Date: 20130716
  Transmission Date: 20140515
  Serious: Yes (Other)
  Sender: FDA-Public Use
  Company Number: TW-BAYER-2013-078431

PATIENT
  Age: 46 Year
  Sex: Female

DRUGS (4)
  1. GADOVIST [Suspect]
     Indication: NUCLEAR MAGNETIC RESONANCE IMAGING THORACIC
     Dosage: UNK UNK, ONCE
  2. GADOVIST [Suspect]
     Indication: MEDIASTINUM NEOPLASM
  3. IOPAMIDOL [Suspect]
     Indication: SCAN WITH CONTRAST
  4. IOPAMIDOL [Suspect]
     Indication: MEDIASTINUM NEOPLASM

REACTIONS (4)
  - Hemiplegia [None]
  - Skin infection [None]
  - Hypersensitivity [None]
  - Rash [None]
